FAERS Safety Report 23764001 (Version 2)
Quarter: 2024Q2

REPORT INFORMATION
  Report Type: Spontaneous
  Country: US (occurrence: US)
  Receive Date: 20240419
  Receipt Date: 20240608
  Transmission Date: 20240716
  Serious: No
  Sender: FDA-Public Use
  Company Number: US-SA-SAC20240416000090

PATIENT
  Age: 54 Year
  Sex: Female

DRUGS (1)
  1. DUPIXENT [Suspect]
     Active Substance: DUPILUMAB
     Indication: Dermatitis atopic
     Dosage: 300 MG, QOW
     Route: 058

REACTIONS (7)
  - Dry skin [Not Recovered/Not Resolved]
  - Skin fissures [Not Recovered/Not Resolved]
  - Pruritus [Recovered/Resolved]
  - Rash [Unknown]
  - Injection site pain [Unknown]
  - Product administered at inappropriate site [Unknown]
  - Product dose omission in error [Unknown]

NARRATIVE: CASE EVENT DATE: 20240501
